FAERS Safety Report 4545518-6 (Version None)
Quarter: 2005Q1

REPORT INFORMATION
  Report Type: 
  Country: None (occurrence: None)
  Receive Date: 20050103
  Receipt Date: 20041007
  Transmission Date: 20050727
  Serious: Yes (Other)
  Sender: FDA-Public Use
  Company Number: A03200403379

PATIENT
  Age: 61 Year
  Sex: Female
  Weight: 66.6788 kg

DRUGS (13)
  1. ELOXATIN [Suspect]
     Indication: COLON CANCER
     Dosage: 140 MG Q2W - INTRAVENOUS NOS
     Route: 042
     Dates: start: 20040908, end: 20040908
  2. ELOXATIN [Suspect]
     Indication: METASTASES TO LIVER
     Dosage: 140 MG Q2W - INTRAVENOUS NOS
     Route: 042
     Dates: start: 20040908, end: 20040908
  3. FLUOROURACIL [Concomitant]
  4. LEUCOVORIN [Concomitant]
  5. ZOLPIDEM TARTRATE [Concomitant]
  6. MULTI-VITAMIN [Concomitant]
  7. CALCIUM CARBONATE [Concomitant]
  8. SERTRALINE HYDROCHLORIDE [Concomitant]
  9. VERAPAMIL [Concomitant]
  10. TRIPROLIDINE/PSEUDOEPHEDRINE [Concomitant]
  11. METHYLPHENIDATE HCL [Concomitant]
  12. EPOGEN [Concomitant]
  13. IRON [Concomitant]

REACTIONS (10)
  - CALCINOSIS [None]
  - CHOLELITHIASIS [None]
  - HEPATIC CIRRHOSIS [None]
  - LIVER DISORDER [None]
  - LUNG NEOPLASM [None]
  - METASTASES TO LIVER [None]
  - METASTASES TO LUNG [None]
  - PORTAL HYPERTENSION [None]
  - PULMONARY GRANULOMA [None]
  - SPLENOMEGALY [None]
